FAERS Safety Report 18512861 (Version 1)
Quarter: 2020Q4

REPORT INFORMATION
  Report Type: Spontaneous
  Country: AU (occurrence: AU)
  Receive Date: 20201117
  Receipt Date: 20201117
  Transmission Date: 20210114
  Serious: Yes (Other)
  Sender: FDA-Public Use
  Company Number: AU-MYLANLABS-2020M1095472

PATIENT
  Age: 73 Year
  Sex: Male

DRUGS (1)
  1. GEMCITABINE. [Suspect]
     Active Substance: GEMCITABINE
     Indication: TRANSITIONAL CELL CARCINOMA
     Dosage: ON DAYS ONE AND EIGHT IN A 21-DAY CYCLE; SCHEDULED TO RECEIVE THREE CYCLES OF GEMCITABINE
     Route: 065

REACTIONS (1)
  - Drug ineffective [Unknown]
